FAERS Safety Report 6905374-5 (Version None)
Quarter: 2010Q3

REPORT INFORMATION
  Report Type: 
  Country: None (occurrence: None)
  Receive Date: 20100804
  Receipt Date: 20100729
  Transmission Date: 20110219
  Serious: Yes (Death, Hospitalization)
  Sender: FDA-Public Use
  Company Number: US-ASTRAZENECA-2010SE27602

PATIENT
  Age: 73 Year
  Sex: Female

DRUGS (13)
  1. SYMBICORT [Suspect]
     Indication: ASTHMA
     Dosage: 80/4.5 TWO PUFFS
     Route: 055
     Dates: start: 20100526
  2. SYMBICORT [Suspect]
     Indication: PNEUMONIA
     Dosage: 80/4.5 TWO PUFFS
     Route: 055
     Dates: start: 20100526
  3. SYMBICORT [Suspect]
     Indication: COUGH
     Dosage: 80/4.5 TWO PUFFS
     Route: 055
     Dates: start: 20100526
  4. POTASSIUM CHLORIDE [Concomitant]
  5. FUROSEMIDE [Concomitant]
  6. MOXIFLOXACIN [Concomitant]
  7. SPIRONOLACTONE [Concomitant]
  8. NYSTATIN [Concomitant]
     Route: 048
  9. PROAIR HFA [Concomitant]
     Dosage: AS NEEDED
  10. REGLAN [Concomitant]
  11. AMBIEN CR [Concomitant]
     Indication: SLEEP DISORDER
  12. SUCRALFATE [Concomitant]
  13. PRILOSEC [Concomitant]

REACTIONS (3)
  - DEATH [None]
  - DRUG DOSE OMISSION [None]
  - PYREXIA [None]
